FAERS Safety Report 6765654-3 (Version None)
Quarter: 2010Q2

REPORT INFORMATION
  Report Type: 
  Country: None (occurrence: None)
  Receive Date: 20100610
  Receipt Date: 20100610
  Transmission Date: 20101027
  Serious: Yes (Hospitalization)
  Sender: FDA-Public Use
  Company Number: None

PATIENT
  Age: 62 Year
  Sex: Female
  Weight: 86 kg

DRUGS (3)
  1. BEVACIZUMAB [Suspect]
     Indication: BREAST CANCER
     Dosage: 964 MG EVERY OTHER WK IV
     Route: 042
     Dates: start: 20100203, end: 20100505
  2. ABRAXANE [Suspect]
     Indication: BREAST CANCER
     Dosage: 198 MG WEEKLY IV
     Route: 042
     Dates: start: 20100216, end: 20100505
  3. CARBOPLATIN [Suspect]
     Indication: BREAST CANCER
     Dosage: 930 MG WKS 1, 4, 7, 10 IV
     Route: 042
     Dates: start: 20100216, end: 20100428

REACTIONS (3)
  - CULTURE POSITIVE [None]
  - STAPHYLOCOCCAL INFECTION [None]
  - SUBCUTANEOUS ABSCESS [None]
